FAERS Safety Report 16051918 (Version 3)
Quarter: 2019Q2

REPORT INFORMATION
  Report Type: Spontaneous
  Country: GB (occurrence: GB)
  Receive Date: 20190308
  Receipt Date: 20190606
  Transmission Date: 20190711
  Serious: Yes (Other)
  Sender: FDA-Public Use
  Company Number: GB-SA-2019SA062685

PATIENT
  Age: 65 Year
  Sex: Female

DRUGS (1)
  1. CEREZYME [Suspect]
     Active Substance: IMIGLUCERASE
     Dosage: 1200 UNITS; EVERY 2 WEEKS
     Route: 041

REACTIONS (6)
  - Urinary tract infection [Not Recovered/Not Resolved]
  - Haematemesis [Unknown]
  - Anaemia [Unknown]
  - Cough [Recovering/Resolving]
  - Sciatica [Unknown]
  - Gastrooesophageal reflux disease [Unknown]

NARRATIVE: CASE EVENT DATE: 2019
